FAERS Safety Report 20746729 (Version 1)
Quarter: 2022Q2

REPORT INFORMATION
  Report Type: Spontaneous
  Country: US (occurrence: US)
  Receive Date: 20220425
  Receipt Date: 20220425
  Transmission Date: 20220721
  Serious: No
  Sender: FDA-Public Use
  Company Number: US-ABBVIE-22K-163-4329934-00

PATIENT

DRUGS (1)
  1. SKYRIZI [Suspect]
     Active Substance: RISANKIZUMAB-RZAA
     Indication: Psoriasis
     Route: 058

REACTIONS (6)
  - Eye swelling [Unknown]
  - Pemphigoid [Unknown]
  - Bacterial infection [Unknown]
  - Hypersensitivity [Unknown]
  - Pruritus [Unknown]
  - Psoriasis [Unknown]
